FAERS Safety Report 15573850 (Version 1)
Quarter: 2018Q4

REPORT INFORMATION
  Report Type: Spontaneous
  Country: GR (occurrence: GR)
  Receive Date: 20181101
  Receipt Date: 20181101
  Transmission Date: 20190205
  Serious: Yes (Hospitalization)
  Sender: FDA-Public Use
  Company Number: GR-INCYTE CORPORATION-2018IN011074

PATIENT

DRUGS (1)
  1. JAKAVI [Suspect]
     Active Substance: RUXOLITINIB
     Indication: MYELOFIBROSIS
     Dosage: 10 MG, QD (5MGX2)
     Route: 065

REACTIONS (4)
  - Pyrexia [Unknown]
  - Aspergillus infection [Unknown]
  - Pneumonia fungal [Unknown]
  - Sepsis [Unknown]
